FAERS Safety Report 16692728 (Version 1)
Quarter: 2019Q3

REPORT INFORMATION
  Report Type: Spontaneous
  Country: HR (occurrence: HR)
  Receive Date: 20190812
  Receipt Date: 20190812
  Transmission Date: 20191004
  Serious: Yes (Other)
  Sender: FDA-Public Use
  Company Number: HR-TEVA-2019-HR-1090381

PATIENT
  Sex: Female

DRUGS (1)
  1. EPRI [Suspect]
     Active Substance: ROSUVASTATIN CALCIUM
     Route: 048

REACTIONS (29)
  - Dyspnoea [Unknown]
  - Haematuria [Unknown]
  - Synovial cyst [Unknown]
  - Dysphagia [Unknown]
  - Alopecia [Unknown]
  - Tinnitus [Unknown]
  - Tremor [Unknown]
  - Pruritus [Unknown]
  - Eye pain [Unknown]
  - Dizziness [Unknown]
  - Muscle contractions involuntary [Unknown]
  - Chills [Unknown]
  - Fluid retention [Unknown]
  - Generalised oedema [Unknown]
  - Face oedema [Unknown]
  - Arthralgia [Unknown]
  - Haematoma [Unknown]
  - Hyperhidrosis [Unknown]
  - Cough [Unknown]
  - Tendon pain [Unknown]
  - Eye pruritus [Unknown]
  - Feeling hot [Unknown]
  - Paraesthesia [Unknown]
  - Musculoskeletal pain [Unknown]
  - Myalgia [Unknown]
  - Constipation [Unknown]
  - Headache [Unknown]
  - Hypoaesthesia [Unknown]
  - Malaise [Unknown]

NARRATIVE: CASE EVENT DATE: 2018
